FAERS Safety Report 5330253-7 (Version None)
Quarter: 2007Q2

REPORT INFORMATION
  Report Type: 
  Country: None (occurrence: None)
  Receive Date: 20070521
  Receipt Date: 20070517
  Transmission Date: 20071010
  Serious: Yes (Death, Hospitalization)
  Sender: FDA-Public Use
  Company Number: KR-SANOFI-SYNTHELABO-F01200700600

PATIENT
  Sex: Female
  Weight: 47 kg

DRUGS (7)
  1. RANITIDINE [Concomitant]
     Dosage: 150 MG
     Route: 048
     Dates: start: 20070308, end: 20070310
  2. DEXAMETHASONE 0.5MG TAB [Concomitant]
     Dosage: 10 MG
     Route: 042
     Dates: start: 20070307, end: 20070307
  3. DEXAMETHASONE 0.5MG TAB [Concomitant]
     Dosage: 4 MG
     Route: 048
     Dates: start: 20070308, end: 20070310
  4. ONDANSETRON [Concomitant]
     Dosage: 8 MG
     Route: 042
     Dates: start: 20070307, end: 20070307
  5. ONDANSETRON [Concomitant]
     Dosage: 8 MG
     Route: 048
     Dates: start: 20070308, end: 20070312
  6. TS-1 [Suspect]
     Dosage: X14 DAYS
     Route: 048
     Dates: start: 20070307, end: 20070321
  7. ELOXATIN [Suspect]
     Indication: GASTRIC CANCER
     Route: 042
     Dates: start: 20070307, end: 20070307

REACTIONS (1)
  - INFECTION [None]
